FAERS Safety Report 4279067-X (Version None)
Quarter: 2004Q1

REPORT INFORMATION
  Report Type: 
  Country: None (occurrence: None)
  Receive Date: 20040126
  Receipt Date: 20040119
  Transmission Date: 20041129
  Serious: Yes (Hospitalization)
  Sender: FDA-Public Use
  Company Number: PHRM2004FR00599

PATIENT
  Age: 64 Year
  Sex: Male
  Weight: 125 kg

DRUGS (4)
  1. LAMISIL [Suspect]
     Indication: INTERTRIGO
     Dosage: 250 MG, QD
     Route: 048
     Dates: start: 20031105, end: 20031124
  2. LAMISIL [Concomitant]
     Dosage: UNK, UNK
     Route: 061
     Dates: start: 20031117, end: 20031124
  3. KETOCONAZOLE [Concomitant]
     Indication: INTERTRIGO
     Dosage: UNK, UNK
     Route: 061
     Dates: start: 20031105
  4. DIPROSONE [Concomitant]
     Indication: INTERTRIGO
     Dosage: UNK, UNK
     Route: 061
     Dates: start: 20031105

REACTIONS (8)
  - CHEILITIS [None]
  - CONJUNCTIVITIS [None]
  - LEUKOCYTOSIS [None]
  - LOCALISED OEDEMA [None]
  - NEUTROPHIL COUNT INCREASED [None]
  - PRURITUS [None]
  - RASH MACULO-PAPULAR [None]
  - SKIN INFLAMMATION [None]
